FAERS Safety Report 16410586 (Version 1)
Quarter: 2019Q2

REPORT INFORMATION
  Report Type: Spontaneous
  Country: JP (occurrence: JP)
  Receive Date: 20190610
  Receipt Date: 20190610
  Transmission Date: 20190711
  Serious: Yes (Other)
  Sender: FDA-Public Use
  Company Number: JP-CELGENEUS-JPN-20190201540

PATIENT
  Age: 6 Decade

DRUGS (2)
  1. ISTODAX [Suspect]
     Active Substance: ROMIDEPSIN
     Indication: ANAPLASTIC LARGE-CELL LYMPHOMA
     Dosage: UNKNOWN
     Route: 041
     Dates: end: 2019
  2. ISTODAX [Suspect]
     Active Substance: ROMIDEPSIN
     Indication: ANAPLASTIC LYMPHOMA KINASE GENE AND NUCLEOPHOSMIN GENE FUSION OVEREXPRESSION

REACTIONS (1)
  - Anaplastic large-cell lymphoma [Not Recovered/Not Resolved]

NARRATIVE: CASE EVENT DATE: 20190205
